FAERS Safety Report 6742502-9 (Version None)
Quarter: 2010Q2

REPORT INFORMATION
  Report Type: 
  Country: None (occurrence: None)
  Receive Date: 20100526
  Receipt Date: 20100517
  Transmission Date: 20101027
  Serious: Yes (Hospitalization)
  Sender: FDA-Public Use
  Company Number: BR-GENENTECH-302122

PATIENT
  Sex: Female
  Weight: 80 kg

DRUGS (4)
  1. RITUXIMAB [Suspect]
     Indication: RHEUMATOID ARTHRITIS
     Dosage: UNK
     Route: 042
     Dates: start: 20091214, end: 20091228
  2. NIMESULIDE [Concomitant]
     Indication: DRUG USE FOR UNKNOWN INDICATION
     Dosage: 100 MG, UNK
  3. DEFLAMOL [Concomitant]
     Indication: DRUG USE FOR UNKNOWN INDICATION
     Dosage: 6 MG, UNK
  4. OMEPRAZOLE [Concomitant]
     Indication: DRUG USE FOR UNKNOWN INDICATION
     Dosage: 50 MG, QAM

REACTIONS (7)
  - ANXIETY [None]
  - ARTHRALGIA [None]
  - DEPRESSION [None]
  - HYPOTENSION [None]
  - MUSCLE ATROPHY [None]
  - MUSCULOSKELETAL DISORDER [None]
  - VISUAL IMPAIRMENT [None]
